FAERS Safety Report 5629530-1 (Version None)
Quarter: 2008Q1

REPORT INFORMATION
  Report Type: 
  Country: None (occurrence: None)
  Receive Date: 20080218
  Receipt Date: 20080207
  Transmission Date: 20080703
  Serious: Yes (Other)
  Sender: FDA-Public Use
  Company Number: US-ROCHE-543208

PATIENT
  Age: 4 Year
  Sex: Male
  Weight: 14.7 kg

DRUGS (1)
  1. TAMIFLU [Suspect]
     Dosage: STOPPED AFTER 3-4 DOSES
     Route: 065
     Dates: start: 20080111, end: 20080112

REACTIONS (2)
  - MOOD SWINGS [None]
  - URTICARIA [None]
